FAERS Safety Report 11260330 (Version 1)
Quarter: 2015Q3

REPORT INFORMATION
  Report Type: Spontaneous
  Country: CA (occurrence: CA)
  Receive Date: 20150710
  Receipt Date: 20150710
  Transmission Date: 20151125
  Serious: Yes (Disabling, Other)
  Sender: FDA-Public Use
  Company Number: CA-HOSPIRA-2799409

PATIENT
  Age: 26 Year
  Sex: Female

DRUGS (1)
  1. MORPHINE SULPHATE [Suspect]
     Active Substance: MORPHINE SULFATE
     Indication: HYSTERECTOMY
     Dosage: NOT REPORTED
     Route: 042

REACTIONS (1)
  - Psychotic disorder [Not Recovered/Not Resolved]
